FAERS Safety Report 4707123-8 (Version None)
Quarter: 2005Q3

REPORT INFORMATION
  Report Type: 
  Country: None (occurrence: None)
  Receive Date: 20050701
  Receipt Date: 20050620
  Transmission Date: 20060218
  Serious: Yes (Death)
  Sender: FDA-Public Use
  Company Number: 2005-DE-02338GD

PATIENT
  Sex: 0

DRUGS (8)
  1. ACETAMINOPHEN [Suspect]
  2. MIRTAZAPINE [Suspect]
  3. COCAINE (COCAINE) [Suspect]
  4. OXYCODONE (OXYCODONE) [Suspect]
  5. PROPOXYPHENE  (DEXTROPROPOXYPHENE) [Suspect]
  6. SALICYLATES(SALICYLATES) [Suspect]
  7. HYDROCODONE BITARTRATE [Suspect]
  8. MARIJUANA (CANNABIS SATIVA) [Suspect]

REACTIONS (2)
  - DRUG TOXICITY [None]
  - POLYSUBSTANCE ABUSE [None]
